FAERS Safety Report 4889505-7 (Version None)
Quarter: 2006Q1

REPORT INFORMATION
  Report Type: 
  Country: None (occurrence: None)
  Receive Date: 20060120
  Receipt Date: 20060111
  Transmission Date: 20060701
  Serious: Yes (Life-Threatening)
  Sender: FDA-Public Use
  Company Number: 2006006868

PATIENT
  Age: 40 Year
  Sex: Female

DRUGS (3)
  1. ZOLOFT [Suspect]
     Indication: PANIC ATTACK
     Dosage: (DAILY), ORAL
     Route: 048
     Dates: start: 20040517, end: 20050511
  2. VALPROIC ACID [Suspect]
     Indication: PANIC ATTACK
     Dosage: 150 MG (150 MG, DAILY), ORAL
     Route: 048
     Dates: start: 20050517, end: 20051104
  3. TACHIPIRINA (PARACETAMOL) [Concomitant]

REACTIONS (1)
  - IRON DEFICIENCY ANAEMIA [None]
